FAERS Safety Report 4613132-X (Version None)
Quarter: 2005Q1

REPORT INFORMATION
  Report Type: 
  Country: None (occurrence: None)
  Receive Date: 20050318
  Receipt Date: 20050302
  Transmission Date: 20050727
  Serious: Yes (Hospitalization)
  Sender: FDA-Public Use
  Company Number: US-MERCK-0503USA00505

PATIENT
  Age: 57 Year
  Sex: Male
  Weight: 77 kg

DRUGS (8)
  1. VYTORIN [Suspect]
     Indication: DYSLIPIDAEMIA
     Route: 048
     Dates: start: 20050221, end: 20050201
  2. VYTORIN [Suspect]
     Indication: HYPERCHOLESTEROLAEMIA
     Route: 048
     Dates: start: 20050221, end: 20050201
  3. CYCLOPHOSPHAMIDE [Concomitant]
     Route: 065
  4. PREDNISONE [Concomitant]
     Route: 065
  5. COZAAR [Concomitant]
     Route: 048
  6. SYNTHROID [Concomitant]
     Route: 065
  7. FUROSEMIDE [Concomitant]
     Route: 065
  8. LESCOL [Suspect]
     Route: 065
     Dates: end: 20050220

REACTIONS (2)
  - MYOSITIS [None]
  - OVERDOSE [None]
